FAERS Safety Report 23310085 (Version 1)
Quarter: 2023Q4

REPORT INFORMATION
  Report Type: Spontaneous
  Country: US (occurrence: None)
  Receive Date: 20231218
  Receipt Date: 20231218
  Transmission Date: 20240110
  Serious: Yes (Death)
  Sender: FDA-Public Use
  Company Number: None

PATIENT
  Age: 14 Year
  Sex: Female
  Weight: 33.9 kg

DRUGS (18)
  1. ALECENSA [Suspect]
     Active Substance: ALECTINIB HYDROCHLORIDE
     Indication: Neuroblastoma
     Dosage: FREQUENCY : TWICE A DAY;?
     Route: 048
     Dates: start: 20230829
  2. KISQALI [Concomitant]
     Active Substance: RIBOCICLIB
  3. LORAZEPAM [Concomitant]
  4. METHADONE [Concomitant]
  5. MORPHINE SULFATE [Concomitant]
     Active Substance: MORPHINE SULFATE
  6. Polyeth Glycol 3350 [Concomitant]
  7. ZYKADIA [Concomitant]
     Active Substance: CERITINIB
  8. CELECOXIB [Concomitant]
  9. PERIDEX [Concomitant]
     Active Substance: CHLORHEXIDINE GLUCONATE
  10. Granistron [Concomitant]
  11. GUANFACINE [Concomitant]
  12. HYDROXYZINE [Concomitant]
  13. LACTULOSE [Concomitant]
     Active Substance: LACTULOSE
  14. LORAZEPAM [Concomitant]
  15. MELATONIN [Concomitant]
  16. TRANSDERM-SCOP [Concomitant]
  17. Lugois Sol [Concomitant]
  18. Potassium Chl [Concomitant]

REACTIONS (1)
  - Death [None]

NARRATIVE: CASE EVENT DATE: 20231212
